FAERS Safety Report 4353292-1 (Version None)
Quarter: 2004Q2

REPORT INFORMATION
  Report Type: 
  Country: None (occurrence: None)
  Receive Date: 20040504
  Receipt Date: 20040504
  Transmission Date: 20050107
  Serious: No
  Sender: FDA-Public Use
  Company Number: None

PATIENT
  Sex: Male
  Weight: 85 kg

DRUGS (2)
  1. CETUXIMAB  100MG VIAL  IMCLONE [Suspect]
     Indication: NON-SMALL CELL LUNG CANCER METASTATIC
     Dosage: 250MG/M2 WEEKLY INTRAVENOUS
     Route: 042
     Dates: start: 20040325, end: 20040422
  2. FENTANYL [Concomitant]

REACTIONS (7)
  - ATRIAL FIBRILLATION [None]
  - BODY TEMPERATURE INCREASED [None]
  - CHILLS [None]
  - FEELING COLD [None]
  - HYPERTENSION [None]
  - TRANSIENT ISCHAEMIC ATTACK [None]
  - TREMOR [None]
